FAERS Safety Report 20991793 (Version 1)
Quarter: 2022Q2

REPORT INFORMATION
  Report Type: Spontaneous
  Country: PR (occurrence: PR)
  Receive Date: 20220622
  Receipt Date: 20220622
  Transmission Date: 20220721
  Serious: Yes (Death, Other)
  Sender: FDA-Public Use
  Company Number: PR-BRISTOL-MYERS SQUIBB COMPANY-2022-061546

PATIENT
  Age: 83 Year
  Sex: Male
  Weight: 104.32 kg

DRUGS (1)
  1. REVLIMID [Suspect]
     Active Substance: LENALIDOMIDE
     Indication: Chronic myeloid leukaemia
     Route: 048
     Dates: start: 20220310, end: 20220525

REACTIONS (1)
  - Death [Fatal]

NARRATIVE: CASE EVENT DATE: 20220525
